FAERS Safety Report 5069693-2 (Version None)
Quarter: 2006Q3

REPORT INFORMATION
  Report Type: 
  Country: None (occurrence: None)
  Receive Date: 20060714
  Receipt Date: 20060404
  Transmission Date: 20061208
  Serious: No
  Sender: FDA-Public Use
  Company Number: 2006SP001538

PATIENT
  Age: 33 Year
  Sex: Female
  Weight: 79.3795 kg

DRUGS (4)
  1. LUNESTA [Suspect]
     Indication: INSOMNIA
     Dosage: 2 MG;ORAL
     Route: 048
     Dates: start: 20060302, end: 20060303
  2. PAXIL [Concomitant]
  3. WELLBUTRIN [Concomitant]
  4. XANAX [Concomitant]

REACTIONS (2)
  - DYSGEUSIA [None]
  - VOMITING [None]
